FAERS Safety Report 21441299 (Version 2)
Quarter: 2022Q4

REPORT INFORMATION
  Report Type: Spontaneous
  Country: CO (occurrence: CO)
  Receive Date: 20221011
  Receipt Date: 20221018
  Transmission Date: 20230113
  Serious: Yes (Other)
  Sender: FDA-Public Use
  Company Number: CO-PFIZER INC-PV202200077649

PATIENT
  Sex: Male

DRUGS (2)
  1. SUTENT [Suspect]
     Active Substance: SUNITINIB MALATE
     Indication: Neuroendocrine carcinoma metastatic
     Dosage: UNK
     Route: 048
     Dates: start: 20220928
  2. ACETAMINOPHEN [Concomitant]
     Active Substance: ACETAMINOPHEN
     Dosage: UNK

REACTIONS (14)
  - Suicidal ideation [Unknown]
  - Loss of consciousness [Not Recovered/Not Resolved]
  - Intentional product misuse [Unknown]
  - Peripheral swelling [Unknown]
  - Swelling [Unknown]
  - Malaise [Unknown]
  - Crying [Unknown]
  - Bedridden [Unknown]
  - Movement disorder [Unknown]
  - Limb injury [Unknown]
  - Loss of personal independence in daily activities [Unknown]
  - Scoliosis [Unknown]
  - Hypoaesthesia [Unknown]
  - Coordination abnormal [Unknown]
